FAERS Safety Report 19407113 (Version 2)
Quarter: 2021Q2

REPORT INFORMATION
  Report Type: Report from Study
  Country: AR (occurrence: AR)
  Receive Date: 20210611
  Receipt Date: 20210621
  Transmission Date: 20210717
  Serious: Yes (Death, Life-Threatening, Hospitalization, Other)
  Sender: FDA-Public Use
  Company Number: AR-BRISTOL-MYERS SQUIBB COMPANY-BMS-2021-056845

PATIENT
  Age: 58 Year
  Sex: Male
  Weight: 98 kg

DRUGS (16)
  1. ABATACEPT [Suspect]
     Active Substance: ABATACEPT
     Indication: COVID-19
     Dosage: 980 MILLIGRAM
     Route: 042
     Dates: start: 20210525, end: 20210525
  2. REMDESIVIR. [Suspect]
     Active Substance: REMDESIVIR
     Indication: COVID-19 PNEUMONIA
     Dosage: 200 MG, ONCE (LOADING DOSE)
     Route: 042
     Dates: start: 20210525, end: 20210525
  3. REMDESIVIR. [Suspect]
     Active Substance: REMDESIVIR
     Dosage: 100 MG ONCE DAILY
     Route: 042
     Dates: start: 20210526, end: 20210603
  4. IMIPENEM [Concomitant]
     Active Substance: IMIPENEM
     Indication: ANTIBIOTIC THERAPY
     Dosage: 500 MILLIGRAM, Q6H
     Route: 042
     Dates: start: 20210602, end: 20210606
  5. DIAZEPAM. [Concomitant]
     Active Substance: DIAZEPAM
     Indication: SEDATION
     Dosage: 10 AMPOULE PLUS 500 ML PHYSIO SOLUTION PER DAY CONTINOUS INFUSION ENDOVENOUS
     Route: 042
     Dates: start: 20210608, end: 20210608
  6. PANCURONIUM [Concomitant]
     Active Substance: PANCURONIUM
     Indication: NEUROMUSCULAR BLOCKADE
     Dosage: 1 AMPOULE EVERY 6 HOURS
     Route: 042
     Dates: start: 20210609, end: 20210609
  7. PANCURONIUM [Concomitant]
     Active Substance: PANCURONIUM
     Indication: MECHANICAL VENTILATION
  8. CLONAZEPAM. [Concomitant]
     Active Substance: CLONAZEPAM
     Indication: ANXIETY
     Dosage: 0.5 MILLIGRAM, Q12H
     Route: 048
     Dates: start: 20210526, end: 20210607
  9. RANITIDINE. [Concomitant]
     Active Substance: RANITIDINE
     Indication: PROPHYLAXIS
     Dosage: 100 MILLIGRAM, Q8H
     Route: 042
     Dates: start: 20210524, end: 20210614
  10. REMIFENTANILO [REMIFENTANIL] [Concomitant]
     Indication: SEDATION
     Dosage: SEDATION FOR INVASIVE VENTILATION 2 AMPOULE PLUS 100 ML PHYSIOLOGICAL SOLUTION PER DAY, CONTINUOUS I
     Route: 042
     Dates: start: 20210608, end: 20210614
  11. AMPICILLIN AND SULBACTAM [Concomitant]
     Active Substance: AMPICILLIN SODIUM\SULBACTAM SODIUM
     Indication: COVID-19 PROPHYLAXIS
     Dosage: 1.5 GRAM, Q6H
     Route: 042
     Dates: start: 20210524, end: 20210531
  12. CLARITHROMYCIN. [Concomitant]
     Active Substance: CLARITHROMYCIN
     Indication: COVID-19 PROPHYLAXIS
     Dosage: 500 MILLIGRAM, Q12H
     Route: 065
     Dates: start: 20210524, end: 20210531
  13. SODIUM HEPARIN [Concomitant]
     Active Substance: HEPARIN SODIUM
     Indication: THROMBOSIS PROPHYLAXIS
     Dosage: 5000 UI
     Route: 058
     Dates: start: 20210524, end: 20210614
  14. MORPHINE HYDROCHLORIDE [Concomitant]
     Active Substance: MORPHINE HYDROCHLORIDE
     Indication: PROPHYLAXIS
     Dosage: 1 PERCENT (10MG AMPOULE), 1 CC DILUTED IN 10CC OF PHYSIOLOGICAL SOLUTION
     Route: 065
     Dates: start: 20210529, end: 20210608
  15. MIDAZOLAM. [Concomitant]
     Active Substance: MIDAZOLAM
     Indication: SEDATION
     Dosage: 8 AMPOULE PLUS 100 ML PHYSIO SOLUTION PER DAY CONTINOUS INFUSION ENDOVENOUS
     Route: 042
     Dates: start: 20210609, end: 20210614
  16. MORPHINE [Concomitant]
     Active Substance: MORPHINE
     Indication: SEDATION
     Dosage: MORPHINE (12 AMPOULE DILUTED IN 250 ML OF PHYSIOLOGICAL SOLUTN 40 ML/HS, PER DAY CONTINOUS INFUSION
     Route: 042
     Dates: start: 20210510, end: 20210614

REACTIONS (2)
  - Pneumonia [Fatal]
  - Septic shock [Fatal]

NARRATIVE: CASE EVENT DATE: 20210607
